FAERS Safety Report 14183253 (Version 2)
Quarter: 2017Q4

REPORT INFORMATION
  Report Type: Spontaneous
  Country: CH (occurrence: CH)
  Receive Date: 20171113
  Receipt Date: 20171121
  Transmission Date: 20180321
  Serious: Yes (Other)
  Sender: FDA-Public Use
  Company Number: CH-TEVA-824680ISR

PATIENT

DRUGS (1)
  1. NOPIL FORTE TABLETTEN [Suspect]
     Active Substance: SULFAMETHOXAZOLE\TRIMETHOPRIM
     Indication: CYSTITIS
     Route: 064
     Dates: start: 20170911, end: 20170914

REACTIONS (2)
  - Exposure during pregnancy [Recovered/Resolved]
  - Abortion incomplete [Recovered/Resolved]

NARRATIVE: CASE EVENT DATE: 20170911
